FAERS Safety Report 5329306-9 (Version None)
Quarter: 2007Q2

REPORT INFORMATION
  Report Type: 
  Country: None (occurrence: None)
  Receive Date: 20070518
  Receipt Date: 20070507
  Transmission Date: 20071010
  Serious: Yes (Other)
  Sender: FDA-Public Use
  Company Number: JP-PFIZER INC-2007037962

PATIENT

DRUGS (7)
  1. GABAPEN [Suspect]
     Route: 048
  2. ALEVIATIN [Concomitant]
     Route: 048
  3. PHENOBARBITAL TAB [Concomitant]
     Route: 048
  4. PANTOSIN [Concomitant]
     Route: 048
  5. CERNILTON [Concomitant]
     Route: 048
  6. URIEF [Concomitant]
     Route: 048
  7. BLADDERON [Concomitant]
     Route: 048

REACTIONS (2)
  - ANTICONVULSANT DRUG LEVEL DECREASED [None]
  - CONVULSION [None]
